FAERS Safety Report 17110953 (Version 7)
Quarter: 2020Q2

REPORT INFORMATION
  Report Type: Report from Study
  Country: CA (occurrence: CA)
  Receive Date: 20191204
  Receipt Date: 20200611
  Transmission Date: 20200713
  Serious: Yes (Other)
  Sender: FDA-Public Use
  Company Number: PHHY2019CA190608

PATIENT
  Age: 10 Year
  Sex: Female

DRUGS (10)
  1. ILARIS [Suspect]
     Active Substance: CANAKINUMAB
     Dosage: UNK
     Route: 065
     Dates: start: 20191101
  2. ILARIS [Suspect]
     Active Substance: CANAKINUMAB
     Indication: MEVALONATE KINASE DEFICIENCY
     Dosage: 75 OT, Q4W
     Route: 058
     Dates: start: 20190614
  3. ILARIS [Suspect]
     Active Substance: CANAKINUMAB
     Dosage: UNK
     Route: 065
     Dates: start: 20191129
  4. ANAKINRA [Concomitant]
     Active Substance: ANAKINRA
     Indication: PRODUCT USED FOR UNKNOWN INDICATION
     Dosage: 50 MG, QD
     Route: 065
     Dates: start: 20180111
  5. ILARIS [Suspect]
     Active Substance: CANAKINUMAB
     Dosage: 75 OT, Q4W
     Route: 058
     Dates: start: 20190712
  6. ILARIS [Suspect]
     Active Substance: CANAKINUMAB
     Dosage: UNK
     Route: 058
     Dates: start: 20200124
  7. ILARIS [Suspect]
     Active Substance: CANAKINUMAB
     Dosage: UNK
     Route: 065
     Dates: start: 20191227
  8. ILARIS [Suspect]
     Active Substance: CANAKINUMAB
     Dosage: 75 OT, Q4W
     Route: 058
     Dates: start: 20200320
  9. ILARIS [Suspect]
     Active Substance: CANAKINUMAB
     Dosage: 75 MG, Q4W
     Route: 058
     Dates: start: 20190906
  10. ILARIS [Suspect]
     Active Substance: CANAKINUMAB
     Dosage: 75 OT, Q4W
     Route: 058
     Dates: start: 20191004

REACTIONS (9)
  - Nasal congestion [Unknown]
  - Mevalonate kinase deficiency [Recovered/Resolved]
  - Blood pressure decreased [Unknown]
  - Rash [Recovered/Resolved]
  - Fatigue [Unknown]
  - Pneumonia [Recovered/Resolved]
  - Pyrexia [Recovered/Resolved]
  - Condition aggravated [Recovered/Resolved]
  - Nasopharyngitis [Unknown]

NARRATIVE: CASE EVENT DATE: 20190809
